FAERS Safety Report 20078296 (Version 1)
Quarter: 2021Q4

REPORT INFORMATION
  Report Type: Report from Study
  Country: US (occurrence: US)
  Receive Date: 20211117
  Receipt Date: 20211117
  Transmission Date: 20220303
  Serious: Yes (Other)
  Sender: FDA-Public Use
  Company Number: US-ABBVIE-21K-163-3908186-00

PATIENT
  Sex: Female
  Weight: 66.738 kg

DRUGS (4)
  1. HUMIRA [Suspect]
     Active Substance: ADALIMUMAB
     Indication: Psoriasis
     Dosage: CITRATE FREE
     Route: 058
     Dates: start: 20180416
  2. HUMIRA [Suspect]
     Active Substance: ADALIMUMAB
     Dosage: CITRATE FREE
     Route: 058
  3. MODERNA COVID-19 VACCINE [Concomitant]
     Active Substance: CX-024414
     Indication: COVID-19 immunisation
     Route: 030
     Dates: start: 20210211, end: 20210211
  4. MODERNA COVID-19 VACCINE [Concomitant]
     Active Substance: CX-024414
     Route: 030
     Dates: start: 20210311, end: 20210311

REACTIONS (11)
  - Foot deformity [Recovering/Resolving]
  - Cataract [Unknown]
  - Weight increased [Not Recovered/Not Resolved]
  - Scoliosis [Unknown]
  - Eczema [Not Recovered/Not Resolved]
  - Psoriasis [Unknown]
  - Back pain [Recovered/Resolved]
  - Pain [Unknown]
  - Somnolence [Not Recovered/Not Resolved]
  - Dizziness [Unknown]
  - Skin exfoliation [Unknown]

NARRATIVE: CASE EVENT DATE: 20210101
